FAERS Safety Report 22056066 (Version 1)
Quarter: 2023Q1

REPORT INFORMATION
  Report Type: Spontaneous
  Country: US (occurrence: US)
  Receive Date: 20230302
  Receipt Date: 20230302
  Transmission Date: 20230417
  Serious: No
  Sender: FDA-Public Use
  Company Number: US-PFIZER INC-202300087710

PATIENT
  Age: 44 Year
  Sex: Female
  Weight: 54.43 kg

DRUGS (1)
  1. NURTEC ODT [Suspect]
     Active Substance: RIMEGEPANT SULFATE
     Indication: Migraine
     Dosage: 75 MG, AS NEEDED
     Route: 048
     Dates: start: 2022

REACTIONS (4)
  - Headache [Recovering/Resolving]
  - Solar lentigo [Not Recovered/Not Resolved]
  - Sensitive skin [Unknown]
  - Sunburn [Unknown]

NARRATIVE: CASE EVENT DATE: 20230101
